FAERS Safety Report 15258734 (Version 1)
Quarter: 2018Q3

REPORT INFORMATION
  Report Type: Spontaneous
  Country: US (occurrence: US)
  Receive Date: 20180809
  Receipt Date: 20180809
  Transmission Date: 20181010
  Serious: No
  Sender: FDA-Public Use
  Company Number: US-SHIRE-US201830816

PATIENT
  Sex: Female

DRUGS (1)
  1. XIIDRA [Suspect]
     Active Substance: LIFITEGRAST
     Indication: DRY EYE
     Dosage: 1 GTT, 2X/DAY:BID
     Route: 047
     Dates: start: 20180806

REACTIONS (9)
  - Mydriasis [Recovered/Resolved]
  - Instillation site pain [Unknown]
  - Instillation site reaction [Unknown]
  - Lip swelling [Unknown]
  - Instillation site erythema [Recovered/Resolved]
  - Drug ineffective [Unknown]
  - Vision blurred [Recovered/Resolved]
  - Paraesthesia oral [Unknown]
  - Sinus disorder [Unknown]
